FAERS Safety Report 10420259 (Version 1)
Quarter: 2014Q3

REPORT INFORMATION
  Report Type: Report from Study
  Country: US (occurrence: None)
  Receive Date: 20140804
  Receipt Date: 20140804
  Transmission Date: 20150326
  Serious: Yes (Other)
  Sender: FDA-Public Use
  Company Number: 2013US008725

PATIENT
  Age: 49 Year
  Sex: Female
  Weight: 71.4 kg

DRUGS (5)
  1. RITALIN (METHYLPHENIDATE HYDROCHLORIDE) [Concomitant]
     Active Substance: METHYLPHENIDATE HYDROCHLORIDE
  2. ALBUTEROL /00139501/ (SALBUTAMOL) [Concomitant]
  3. SPIRIVA [Concomitant]
     Active Substance: TIOTROPIUM BROMIDE MONOHYDRATE
  4. LEXAPRO [Concomitant]
     Active Substance: ESCITALOPRAM OXALATE
  5. GLASSIA [Suspect]
     Active Substance: .ALPHA.1-PROTEINASE INHIBITOR HUMAN
     Indication: ALPHA-1 ANTI-TRYPSIN DEFICIENCY
     Dosage: 4282 MG, +1- 10% WEEKLY, INTRAVENOUS
     Route: 042
     Dates: start: 20110401

REACTIONS (5)
  - Malaise [None]
  - Dehydration [None]
  - Fatigue [None]
  - Insomnia [None]
  - Sinus headache [None]

NARRATIVE: CASE EVENT DATE: 20130512
